FAERS Safety Report 6654573-9 (Version None)
Quarter: 2010Q1

REPORT INFORMATION
  Report Type: 
  Country: None (occurrence: None)
  Receive Date: 20100326
  Receipt Date: 20100323
  Transmission Date: 20100710
  Serious: Yes (Death)
  Sender: FDA-Public Use
  Company Number: IT-ROCHE-692790

PATIENT
  Sex: Female

DRUGS (2)
  1. BEVACIZUMAB [Suspect]
     Indication: DRUG USE FOR UNKNOWN INDICATION
     Dosage: LAST DOSE PRIOR TO SAE ON 11 JANUARY 2010.
     Route: 065
     Dates: start: 20091023, end: 20100111
  2. TAXOTERE [Suspect]
     Indication: DRUG USE FOR UNKNOWN INDICATION
     Dosage: LAST DOSE PRIOR TO SAE: 11 JAN 2010
     Route: 065
     Dates: start: 20091023, end: 20100111

REACTIONS (1)
  - METASTATIC NEOPLASM [None]
